FAERS Safety Report 20678678 (Version 1)
Quarter: 2022Q2

REPORT INFORMATION
  Report Type: Spontaneous
  Country: CN (occurrence: CN)
  Receive Date: 20220406
  Receipt Date: 20220406
  Transmission Date: 20220720
  Serious: Yes (Hospitalization)
  Sender: FDA-Public Use
  Company Number: CN-BAYER-2022A048264

PATIENT
  Age: 38 Year
  Sex: Female
  Weight: 51 kg

DRUGS (1)
  1. AVELOX [Suspect]
     Active Substance: MOXIFLOXACIN HYDROCHLORIDE
     Indication: Mycoplasma infection
     Dosage: 0.4 G, QD
     Route: 048
     Dates: start: 20220315, end: 20220318

REACTIONS (3)
  - Myositis [Recovering/Resolving]
  - Arthralgia [Recovering/Resolving]
  - Tendon pain [Recovering/Resolving]

NARRATIVE: CASE EVENT DATE: 20220318
